FAERS Safety Report 9553885 (Version 1)
Quarter: 2013Q3

REPORT INFORMATION
  Report Type: Spontaneous
  Country: IT (occurrence: None)
  Receive Date: 20130923
  Receipt Date: 20130923
  Transmission Date: 20140515
  Serious: Yes (Other)
  Sender: FDA-Public Use
  Company Number: FK201302825

PATIENT
  Age: 59 Year
  Sex: Female
  Weight: 80 kg

DRUGS (4)
  1. PROPOFOL [Suspect]
     Indication: ANAESTHESIA
     Dosage: 150 MG, 1 IN 1 D, INTRAVENOUS (NOT OTHERWISE SPECIFIED)
     Route: 042
     Dates: start: 20130716, end: 20130716
  2. ESMERON [Suspect]
     Indication: ANAESTHESIA
     Dosage: 50 MG, 1 IN 1 D, INTRAVENOUS DRIP
     Route: 041
     Dates: start: 20130716, end: 20130716
  3. IPNOVEL (MIDAZOLAM) (MIDAZOLAM) [Concomitant]
  4. FENTANEST (FENTANYL CITRATE) (FENTANYL CITRATE) [Concomitant]

REACTIONS (1)
  - Anaphylactic shock [None]
